FAERS Safety Report 8489742-9 (Version None)
Quarter: 2012Q3

REPORT INFORMATION
  Report Type: 
  Country: None (occurrence: None)
  Receive Date: 20120705
  Receipt Date: 20120626
  Transmission Date: 20120928
  Serious: Yes (Hospitalization)
  Sender: FDA-Public Use
  Company Number: IT-GLAXOSMITHKLINE-B0812087A

PATIENT
  Sex: Female

DRUGS (5)
  1. ZOFRAN [Suspect]
     Indication: PROPHYLAXIS
     Dosage: 4MG PER DAY
     Route: 042
     Dates: start: 20120530, end: 20120530
  2. SOLU-CORTEF [Concomitant]
     Indication: PREMEDICATION
     Dosage: 500MG PER DAY
     Route: 042
     Dates: start: 20120530, end: 20120530
  3. RANITIDINE HCL [Suspect]
     Indication: PROPHYLAXIS
     Dosage: 50MG PER DAY
     Route: 042
     Dates: start: 20120530, end: 20120530
  4. PIPERACILLIN AND TAZOBACTAM [Concomitant]
     Indication: PREMEDICATION
     Dosage: 10MG PER DAY
     Route: 042
     Dates: start: 20120530, end: 20120530
  5. CARBOPLATIN [Suspect]
     Indication: OVARIAN CANCER
     Dosage: 600MG PER DAY
     Route: 042
     Dates: start: 20120530, end: 20120530

REACTIONS (3)
  - URTICARIA [None]
  - DYSPNOEA [None]
  - ATRIAL NATRIURETIC PEPTIDE INCREASED [None]
